FAERS Safety Report 9974520 (Version 1)
Quarter: 2014Q1

REPORT INFORMATION
  Report Type: Report from Study
  Country: US (occurrence: US)
  Receive Date: 20140306
  Receipt Date: 20140306
  Transmission Date: 20141002
  Serious: No
  Sender: FDA-Public Use
  Company Number: US-ABBVIE-13P-163-1159134-00

PATIENT
  Age: 41 Year
  Sex: Female

DRUGS (5)
  1. HUMIRA [Suspect]
     Indication: CROHN^S DISEASE
     Dates: start: 20130930
  2. HUMIRA [Suspect]
     Dates: start: 20131014
  3. OMEPRAZOLE [Concomitant]
     Indication: GASTROOESOPHAGEAL REFLUX DISEASE
     Dosage: 20 MG DAILY
     Route: 048
  4. PROZAC [Concomitant]
     Indication: ANXIETY
     Dosage: 20 MG DAILY
     Route: 048
  5. PREDNISONE [Concomitant]
     Dosage: TAPER CURRENTLY 15 MG DAILY
     Route: 048

REACTIONS (5)
  - Injection site bruising [Recovering/Resolving]
  - Injection site bruising [Not Recovered/Not Resolved]
  - Injection site rash [Not Recovered/Not Resolved]
  - Injection site swelling [Not Recovered/Not Resolved]
  - Injection site pruritus [Not Recovered/Not Resolved]
